FAERS Safety Report 6206099-4 (Version None)
Quarter: 2009Q2

REPORT INFORMATION
  Report Type: 
  Country: None (occurrence: None)
  Receive Date: 20090528
  Receipt Date: 20080918
  Transmission Date: 20091009
  Serious: No
  Sender: FDA-Public Use
  Company Number: A0748387A

PATIENT
  Age: 81 Year
  Sex: Female

DRUGS (9)
  1. DIGIBIND [Suspect]
     Dosage: 40MG PER DAY
     Route: 042
     Dates: start: 20080917
  2. KAYEXALATE [Concomitant]
  3. ALLOPURINOL [Concomitant]
  4. SYNTHROID [Concomitant]
  5. SPIRONOLACTONE [Concomitant]
  6. INSULIN [Concomitant]
  7. ASPIRIN [Concomitant]
  8. UNKNOWN DRUG [Concomitant]
  9. LOVENOX [Concomitant]

REACTIONS (1)
  - BLOOD BICARBONATE DECREASED [None]
